FAERS Safety Report 17349170 (Version 1)
Quarter: 2020Q1

REPORT INFORMATION
  Report Type: Spontaneous
  Country: GB (occurrence: GB)
  Receive Date: 20200129
  Receipt Date: 20200129
  Transmission Date: 20200409
  Serious: Yes (Hospitalization)
  Sender: FDA-Public Use
  Company Number: GB-TEVA-2020-GB-1177049

PATIENT
  Age: 62 Year
  Sex: Female

DRUGS (4)
  1. AMOXICILLIN. [Concomitant]
     Active Substance: AMOXICILLIN
     Dosage: 1500 MG
     Route: 048
     Dates: start: 20191028, end: 20191104
  2. DOXYCYCLINE. [Concomitant]
     Active Substance: DOXYCYCLINE
     Dosage: 100 MG
     Route: 048
     Dates: start: 20191104, end: 20191104
  3. METHOTREXATE. [Suspect]
     Active Substance: METHOTREXATE
     Indication: APLASIA PURE RED CELL
     Dosage: SUSPENDED WHILST TREATED FOR PNEUMONIA, 2.5 MG WEEKLY
     Route: 048
  4. FOLIC ACID. [Concomitant]
     Active Substance: FOLIC ACID
     Dosage: EXCEPT METHOTREXATE DAY,  5 MG
     Route: 048

REACTIONS (2)
  - Immunosuppression [Unknown]
  - Pneumonia [Recovering/Resolving]

NARRATIVE: CASE EVENT DATE: 20200106
